FAERS Safety Report 4932866-0 (Version None)
Quarter: 2006Q1

REPORT INFORMATION
  Report Type: 
  Country: None (occurrence: None)
  Receive Date: 20060302
  Receipt Date: 20060302
  Transmission Date: 20060701
  Serious: Yes (Hospitalization)
  Sender: FDA-Public Use
  Company Number: None

PATIENT
  Age: 58 Year
  Sex: Male

DRUGS (2)
  1. ASPIRIN [Suspect]
     Dosage: 81 MG   DAILY   PO
     Route: 048
  2. AMITRIPTYLINE HCL [Suspect]
     Dosage: PO
     Route: 048

REACTIONS (7)
  - DIZZINESS [None]
  - DUODENAL ULCER [None]
  - FATIGUE [None]
  - HAEMOGLOBIN DECREASED [None]
  - HAEMORRHAGE [None]
  - MELAENA [None]
  - THROMBOCYTOPENIA [None]
